FAERS Safety Report 11742893 (Version 1)
Quarter: 2015Q4

REPORT INFORMATION
  Report Type: Report from Study
  Country: US (occurrence: US)
  Receive Date: 20151116
  Receipt Date: 20151116
  Transmission Date: 20160304
  Serious: Yes (Hospitalization)
  Sender: FDA-Public Use
  Company Number: US-JNJFOC-20151112932

PATIENT
  Age: 21 Year
  Sex: Male
  Weight: 61.1 kg

DRUGS (1)
  1. INFLIXIMAB, RECOMBINANT [Suspect]
     Active Substance: INFLIXIMAB
     Indication: CROHN^S DISEASE
     Route: 042
     Dates: start: 20050112

REACTIONS (1)
  - Retroperitoneal abscess [Recovered/Resolved]

NARRATIVE: CASE EVENT DATE: 20151030
